FAERS Safety Report 4316368-0 (Version None)
Quarter: 2004Q1

REPORT INFORMATION
  Report Type: 
  Country: None (occurrence: None)
  Receive Date: 20040311
  Receipt Date: 20040227
  Transmission Date: 20041129
  Serious: No
  Sender: FDA-Public Use
  Company Number: 04P-028-0251868-00

PATIENT

DRUGS (1)
  1. ULTANE [Suspect]
     Indication: ANAESTHESIA

REACTIONS (3)
  - ANAESTHETIC COMPLICATION [None]
  - BRONCHOSPASM [None]
  - PULMONARY OEDEMA [None]
